FAERS Safety Report 4718470-8 (Version None)
Quarter: 2005Q3

REPORT INFORMATION
  Report Type: 
  Country: None (occurrence: None)
  Receive Date: 20050719
  Receipt Date: 20050429
  Transmission Date: 20060218
  Serious: Yes (Hospitalization, Other)
  Sender: FDA-Public Use
  Company Number: 2005068436

PATIENT
  Sex: Female
  Weight: 114.3065 kg

DRUGS (7)
  1. CELEBREX [Suspect]
     Indication: ARTHRITIS
     Dosage: (DAILY), ORAL
     Route: 048
  2. NEURONTIN [Suspect]
     Indication: NEURALGIA
     Dosage: 100 MG (100 MG, 1 IN 1 D), ORAL
     Route: 048
     Dates: start: 20031101
  3. BLOPRESS PLUS (CANDESARTAN CILEXETIL, HYDROCHLOROTHIAZIDE) [Concomitant]
  4. METOPROLOL SUCCINATE [Concomitant]
  5. OMEPRAZOLE [Concomitant]
  6. ALPRAZOLAM [Concomitant]
  7. HYDROCODONE (HYDROCODONE) [Concomitant]

REACTIONS (7)
  - BODY HEIGHT DECREASED [None]
  - BURNING SENSATION [None]
  - DRUG EFFECT DECREASED [None]
  - DRUG INEFFECTIVE [None]
  - MUSCLE SPASMS [None]
  - NEURALGIA [None]
  - ULCER [None]
